FAERS Safety Report 9628523 (Version 1)
Quarter: 2013Q4

REPORT INFORMATION
  Report Type: Spontaneous
  Country: JP (occurrence: JP)
  Receive Date: 20131017
  Receipt Date: 20131017
  Transmission Date: 20140711
  Serious: Yes (Other)
  Sender: FDA-Public Use
  Company Number: JP-SA-2013SA103482

PATIENT
  Sex: Male

DRUGS (6)
  1. LANTUS SOLOSTAR [Suspect]
     Indication: TYPE 2 DIABETES MELLITUS
     Route: 058
  2. DAONIL [Suspect]
     Indication: TYPE 2 DIABETES MELLITUS
     Route: 048
  3. SOLOSTAR [Concomitant]
     Indication: DEVICE THERAPY
  4. ACTOS [Concomitant]
     Route: 048
  5. GLYCORAN [Concomitant]
     Route: 048
  6. SEIBULE [Concomitant]
     Route: 048

REACTIONS (2)
  - Renal impairment [Unknown]
  - Abdominal distension [Unknown]
